FAERS Safety Report 4595813-X (Version None)
Quarter: 2005Q1

REPORT INFORMATION
  Report Type: 
  Country: None (occurrence: None)
  Receive Date: 20050224
  Receipt Date: 20050224
  Transmission Date: 20050727
  Serious: No
  Sender: FDA-Public Use
  Company Number: None

PATIENT
  Sex: Female

DRUGS (2)
  1. PRED FORTE [Suspect]
     Indication: CATARACT
     Dosage: 1 OS BID
  2. PRED FORTE [Suspect]
     Indication: POST PROCEDURAL COMPLICATION
     Dosage: 1 OS BID

REACTIONS (2)
  - DRUG TOXICITY [None]
  - HYPERSENSITIVITY [None]
